FAERS Safety Report 6774475-7 (Version None)
Quarter: 2010Q2

REPORT INFORMATION
  Report Type: 
  Country: None (occurrence: None)
  Receive Date: 20100617
  Receipt Date: 20100607
  Transmission Date: 20101027
  Serious: Yes (Other)
  Sender: FDA-Public Use
  Company Number: PHHY2010DE30318

PATIENT
  Sex: Female
  Weight: 70 kg

DRUGS (1)
  1. RASILEZ [Suspect]
     Indication: HYPERTENSION
     Dosage: 1 DF, QD

REACTIONS (5)
  - DEPRESSION [None]
  - MYALGIA [None]
  - NEGATIVE THOUGHTS [None]
  - SLEEP DISORDER [None]
  - TACHYCARDIA [None]
